FAERS Safety Report 10359906 (Version 3)
Quarter: 2014Q4

REPORT INFORMATION
  Report Type: Spontaneous
  Country: JP (occurrence: None)
  Receive Date: 20140730
  Receipt Date: 20141015
  Transmission Date: 20150528
  Serious: Yes (Hospitalization, Other)
  Sender: FDA-Public Use
  Company Number: 2014RN000033

PATIENT
  Age: 39 Year
  Sex: Female
  Weight: 55 kg

DRUGS (2)
  1. LOXONIN (LOXOPROFEN SODIUM) [Concomitant]
     Active Substance: LOXOPROFEN SODIUM
  2. ACYCLOVIR. [Suspect]
     Active Substance: ACYCLOVIR
     Indication: HERPES VIRUS INFECTION
     Dosage: 1 DF, UNK, ORAL
     Route: 048
     Dates: start: 20140615, end: 20140619

REACTIONS (7)
  - Tumour pain [None]
  - Abdominal pain lower [None]
  - Anaemia [None]
  - Exposure during pregnancy [None]
  - Loss of consciousness [None]
  - Fall [None]
  - Uterine leiomyoma [None]

NARRATIVE: CASE EVENT DATE: 20140621
